FAERS Safety Report 17655779 (Version 1)
Quarter: 2020Q2

REPORT INFORMATION
  Report Type: Spontaneous
  Country: US (occurrence: US)
  Receive Date: 20200409
  Receipt Date: 20200409
  Transmission Date: 20200713
  Serious: No
  Sender: FDA-Public Use
  Company Number: None

PATIENT
  Age: 64 Year
  Sex: Female

DRUGS (1)
  1. PULMOZYME [Suspect]
     Active Substance: DORNASE ALFA
     Dosage: ?          OTHER DOSE:2.5MG/2.5ML;?
     Route: 055
     Dates: start: 201809

REACTIONS (4)
  - Fatigue [None]
  - Hypersensitivity [None]
  - Headache [None]
  - Diarrhoea [None]

NARRATIVE: CASE EVENT DATE: 20200317
